FAERS Safety Report 14192906 (Version 1)
Quarter: 2017Q4

REPORT INFORMATION
  Report Type: Report from Study
  Country: ES (occurrence: ES)
  Receive Date: 20171116
  Receipt Date: 20171116
  Transmission Date: 20180321
  Serious: Yes (Other)
  Sender: FDA-Public Use
  Company Number: ES-ROCHE-2020834

PATIENT
  Age: 37 Year
  Sex: Female
  Weight: 59 kg

DRUGS (10)
  1. SEROQUEL [Suspect]
     Active Substance: QUETIAPINE FUMARATE
     Indication: SCHIZOAFFECTIVE DISORDER BIPOLAR TYPE
     Dosage: 1 AT NIGHT
     Route: 048
     Dates: start: 20160612, end: 20160621
  2. DEPAKENE [Suspect]
     Active Substance: VALPROIC ACID
     Dosage: (1 IN THE MORNING AND TWO AT NIGHT)
     Route: 048
     Dates: start: 20160621
  3. EUTIROX [Concomitant]
     Active Substance: LEVOTHYROXINE SODIUM
     Dosage: DOSE WAS ADDED ON SUNDAY
     Route: 048
     Dates: start: 20160612, end: 20160621
  4. DEPAKENE [Suspect]
     Active Substance: VALPROIC ACID
     Indication: SCHIZOAFFECTIVE DISORDER BIPOLAR TYPE
     Dosage: 1000 MG/DAY (1 AT MORNING AND 1 AT NIGHT)
     Route: 048
     Dates: start: 20160612, end: 20160621
  5. RISPERIDONE. [Suspect]
     Active Substance: RISPERIDONE
     Route: 048
     Dates: start: 20160621, end: 201611
  6. EUTIROX [Concomitant]
     Active Substance: LEVOTHYROXINE SODIUM
     Dosage: STARTED SINCE YEARS AGO (FROM MONDAY TO SATURDAY)
     Route: 048
     Dates: end: 201611
  7. SEROQUEL [Suspect]
     Active Substance: QUETIAPINE FUMARATE
     Dosage: 1 IN THE MORNING AND 1 AT NIGHT
     Route: 048
     Dates: start: 20160621
  8. CLONAZEPAM. [Suspect]
     Active Substance: CLONAZEPAM
     Indication: SCHIZOAFFECTIVE DISORDER BIPOLAR TYPE
     Dosage: 1 IN THE MORNING AND 1 AT NIGHT
     Route: 048
     Dates: start: 20160612, end: 20160901
  9. RISPERIDONE. [Suspect]
     Active Substance: RISPERIDONE
     Indication: SCHIZOAFFECTIVE DISORDER BIPOLAR TYPE
     Route: 048
     Dates: start: 20160612, end: 20160621
  10. LORMETAZEPAM [Suspect]
     Active Substance: LORMETAZEPAM
     Indication: SCHIZOAFFECTIVE DISORDER BIPOLAR TYPE
     Route: 048
     Dates: start: 20160612, end: 20160901

REACTIONS (1)
  - Abnormal weight gain [Unknown]

NARRATIVE: CASE EVENT DATE: 20160623
